FAERS Safety Report 25961803 (Version 1)
Quarter: 2025Q4

REPORT INFORMATION
  Report Type: Spontaneous
  Country: US (occurrence: US)
  Receive Date: 20251027
  Receipt Date: 20251027
  Transmission Date: 20260118
  Serious: No
  Sender: TOLMAR
  Company Number: US-Tolmar-TLM-2025-07591

PATIENT

DRUGS (3)
  1. ELIGARD [Suspect]
     Active Substance: LEUPROLIDE ACETATE
     Indication: Prostate cancer
     Dosage: APR-2027; MAR-2027; MAR-2027?SERIAL: NOT AVAILABLE. THE PART WITH THE SERIAL NUMBER ON IT WAS RIPPED
     Route: 065
  2. ELIGARD [Suspect]
     Active Substance: LEUPROLIDE ACETATE
     Route: 065
  3. DEVICE [Suspect]
     Active Substance: DEVICE
     Indication: Prostate cancer
     Dosage: APR-2027; MAR-2027; MAR-2027?SERIAL: NOT AVAILABLE. THE PART WITH THE SERIAL NUMBER ON IT WAS RIPPED

REACTIONS (1)
  - Product preparation error [Unknown]
